FAERS Safety Report 5546743-8 (Version None)
Quarter: 2007Q4

REPORT INFORMATION
  Report Type: 
  Country: None (occurrence: None)
  Receive Date: 20071207
  Receipt Date: 20071207
  Transmission Date: 20080405
  Serious: Yes (Hospitalization)
  Sender: FDA-Public Use
  Company Number: None

PATIENT
  Sex: Male
  Weight: 85 kg

DRUGS (3)
  1. CYTARABINE [Suspect]
     Dosage: 1400 MG
     Dates: end: 20071123
  2. DAUNORUBICIN HCL [Suspect]
     Dosage: 555 MG
     Dates: end: 20071118
  3. ETOPOSIDE [Suspect]
     Dosage: 600 MG
     Dates: start: 20071118

REACTIONS (20)
  - ACUTE RESPIRATORY DISTRESS SYNDROME [None]
  - ALPHA HAEMOLYTIC STREPTOCOCCAL INFECTION [None]
  - BLOOD CULTURE POSITIVE [None]
  - CARDIOMEGALY [None]
  - CHRONIC OBSTRUCTIVE PULMONARY DISEASE [None]
  - DIARRHOEA [None]
  - EJECTION FRACTION DECREASED [None]
  - FLUID OVERLOAD [None]
  - HEADACHE [None]
  - HICCUPS [None]
  - HYPOXIA [None]
  - INFLAMMATION [None]
  - LUNG INFECTION [None]
  - LYMPHOCYTOSIS [None]
  - NAUSEA [None]
  - PLEURAL EFFUSION [None]
  - PULMONARY OEDEMA [None]
  - SINUS TACHYCARDIA [None]
  - TACHYPNOEA [None]
  - VOMITING [None]
